FAERS Safety Report 18940493 (Version 1)
Quarter: 2021Q1

REPORT INFORMATION
  Report Type: Spontaneous
  Country: GB (occurrence: GB)
  Receive Date: 20210225
  Receipt Date: 20210225
  Transmission Date: 20210420
  Serious: Yes (Life-Threatening, Hospitalization)
  Sender: FDA-Public Use
  Company Number: GB-TEVA-2021-GB-1881086

PATIENT
  Age: 39 Year
  Sex: Female

DRUGS (7)
  1. LEVOTHYROXINE. [Concomitant]
     Active Substance: LEVOTHYROXINE
     Dosage: 1 DOSAGE FORMS DAILY; 100MCG/125MCG ON ALTERNATING DAYS
  2. THIAMINE. [Concomitant]
     Active Substance: THIAMINE
     Dosage: 300 MILLIGRAM DAILY;
  3. QUETIAPINE. [Suspect]
     Active Substance: QUETIAPINE
     Indication: BIPOLAR DISORDER
     Dosage: 350 MILLIGRAM DAILY; AT NIGHT
     Route: 048
     Dates: end: 20210202
  4. VENLAFAXINE [Suspect]
     Active Substance: VENLAFAXINE HYDROCHLORIDE
     Indication: BIPOLAR DISORDER
     Dosage: 225 MILLIGRAM DAILY; IN THE MORNING
     Route: 048
     Dates: end: 20210202
  5. FERROUS FUMARATE [Concomitant]
     Active Substance: FERROUS FUMARATE
     Dosage: 630 MILLIGRAM DAILY;
  6. PARACETAMOL [Concomitant]
     Active Substance: ACETAMINOPHEN
  7. VITAMIN B COMPLEX STRONG [Concomitant]
     Dosage: 3 DOSAGE FORMS DAILY;

REACTIONS (5)
  - Fall [Unknown]
  - Intentional dose omission [Unknown]
  - Muscle rigidity [Unknown]
  - Starvation ketoacidosis [Unknown]
  - Neuroleptic malignant syndrome [Recovering/Resolving]

NARRATIVE: CASE EVENT DATE: 20210131
